FAERS Safety Report 8878590 (Version 1)
Quarter: 2012Q4

REPORT INFORMATION
  Report Type: 
  Country: US (occurrence: US)
  Receive Date: 20121025
  Receipt Date: 20121025
  Transmission Date: 20130627
  Serious: No
  Sender: FDA-Public Use
  Company Number: US-AMGEN-USASP2012016274

PATIENT
  Age: 65 Year
  Sex: Female

DRUGS (3)
  1. ENBREL [Suspect]
     Indication: RHEUMATOID ARTHRITIS
     Dosage: 50 mg, qwk
     Dates: start: 20110201
  2. METHOTREXATE [Concomitant]
  3. PREDNISONE [Concomitant]

REACTIONS (21)
  - Breast inflammation [Recovered/Resolved]
  - Skin mass [Recovered/Resolved]
  - Pain [Recovered/Resolved]
  - Erythema [Recovered/Resolved]
  - Nail disorder [Recovered/Resolved]
  - Acne [Recovered/Resolved]
  - Musculoskeletal pain [Recovered/Resolved]
  - Chills [Recovered/Resolved]
  - Nodule [Recovered/Resolved]
  - Rheumatoid arthritis [Recovering/Resolving]
  - Contusion [Unknown]
  - Rhinorrhoea [Recovered/Resolved]
  - Local swelling [Recovered/Resolved]
  - Malaise [Unknown]
  - Nasal abscess [Recovering/Resolving]
  - Localised infection [Recovered/Resolved]
  - Rash pustular [Recovered/Resolved]
  - Injection site erythema [Recovered/Resolved]
  - Injection site swelling [Recovered/Resolved]
  - Abscess limb [Recovered/Resolved]
  - Staphylococcal infection [Recovered/Resolved]
